FAERS Safety Report 8035551-4 (Version None)
Quarter: 2012Q1

REPORT INFORMATION
  Report Type: 
  Country: None (occurrence: None)
  Receive Date: 20120111
  Receipt Date: 20120105
  Transmission Date: 20120608
  Serious: Yes (Other)
  Sender: FDA-Public Use
  Company Number: FR-JNJFOC-20120102028

PATIENT
  Sex: Female

DRUGS (7)
  1. SIMVASTATIN [Concomitant]
     Route: 048
  2. RABEPRAZOLE SODIUM [Concomitant]
     Dates: start: 20111012, end: 20111019
  3. XARELTO [Suspect]
     Indication: ILL-DEFINED DISORDER
     Route: 048
     Dates: start: 20111012, end: 20111017
  4. TRAMADOL HCL [Concomitant]
     Dates: start: 20111012
  5. ENALAPRIL MALEATE [Concomitant]
     Route: 048
  6. MORPHINE SULFATE [Concomitant]
     Indication: PAIN
     Route: 048
     Dates: start: 20111012, end: 20111218
  7. ACETAMINOPHEN [Concomitant]
     Route: 048
     Dates: start: 20111012

REACTIONS (1)
  - VENOUS THROMBOSIS [None]
